FAERS Safety Report 8518452-4 (Version None)
Quarter: 2012Q3

REPORT INFORMATION
  Report Type: 
  Country: None (occurrence: None)
  Receive Date: 20120718
  Receipt Date: 20120314
  Transmission Date: 20120928
  Serious: No
  Sender: FDA-Public Use
  Company Number: US-BRISTOL-MYERS SQUIBB COMPANY-16453359

PATIENT
  Sex: Female

DRUGS (4)
  1. VALIUM [Concomitant]
  2. CALCIUM [Concomitant]
     Dosage: CALCIUM TABS
  3. FENOFIBRATE [Concomitant]
     Indication: BLOOD CHOLESTEROL INCREASED
  4. WARFARIN SODIUM [Suspect]

REACTIONS (1)
  - INTERNATIONAL NORMALISED RATIO ABNORMAL [None]
